FAERS Safety Report 4722384-7 (Version None)
Quarter: 2005Q3

REPORT INFORMATION
  Report Type: 
  Country: None (occurrence: None)
  Receive Date: 20050720
  Receipt Date: 20050707
  Transmission Date: 20060218
  Serious: Yes (Other)
  Sender: FDA-Public Use
  Company Number: 2005039618

PATIENT
  Sex: Male

DRUGS (9)
  1. VIAGRA [Suspect]
     Indication: ILL-DEFINED DISORDER
     Dosage: 50 MG ORAL
     Route: 048
     Dates: start: 19980101
  2. DETROL LA [Suspect]
     Indication: NOCTURIA
     Dosage: 4 MG (4 MG, 1 IN 1 D) ORAL
     Route: 048
     Dates: start: 20040101
  3. CARDURA [Suspect]
     Indication: BENIGN PROSTATIC HYPERPLASIA
     Dosage: 4 MG
  4. TAMSULOSIN HCL [Suspect]
     Indication: ILL-DEFINED DISORDER
  5. UROXATRAL [Suspect]
     Indication: ILL-DEFINED DISORDER
  6. ASPIRIN [Concomitant]
  7. LOTENSIN [Concomitant]
  8. PLENDIL [Concomitant]
  9. ALL OTHER THERAPEUTIC PRODUCTS [Concomitant]

REACTIONS (14)
  - BENIGN PROSTATIC HYPERPLASIA [None]
  - BLADDER OBSTRUCTION [None]
  - BLOOD TESTOSTERONE INCREASED [None]
  - CONSTIPATION [None]
  - DISEASE RECURRENCE [None]
  - DRUG INEFFECTIVE [None]
  - HYPERTONIC BLADDER [None]
  - INGUINAL HERNIA [None]
  - MEMORY IMPAIRMENT [None]
  - MICTURITION URGENCY [None]
  - MUSCULOSKELETAL DISCOMFORT [None]
  - PROSTATE CANCER [None]
  - PROSTATITIS [None]
  - REFUSAL OF TREATMENT BY PATIENT [None]
